FAERS Safety Report 9557163 (Version 1)
Quarter: 2013Q3

REPORT INFORMATION
  Report Type: Spontaneous
  Country: US (occurrence: None)
  Receive Date: 20130726
  Receipt Date: 20130726
  Transmission Date: 20140515
  Serious: Yes (Hospitalization)
  Sender: FDA-Public Use
  Company Number: UTC-025121

PATIENT
  Age: 52 Year
  Sex: Female
  Weight: 65.3 kg

DRUGS (8)
  1. REMODULIN [Suspect]
     Indication: PULMONARY HYPERTENSION
     Dosage: 72 UG/KG (0.5 UG/KG, 1 IN 1 MIN),,INTRAVENOUS DRIP
     Route: 041
     Dates: start: 20120218
  2. COUMADIN [Suspect]
  3. REVATIO (SILDENAFIL CITRATE) [Concomitant]
  4. TRACLEER (BOSENTAN) [Concomitant]
  5. AMIODARONE [Suspect]
  6. DIGOXIN [Concomitant]
  7. OXYGEN [Concomitant]
  8. COREG (CARVEDILOL) [Concomitant]

REACTIONS (1)
  - Injection site infection [None]
